FAERS Safety Report 9515576 (Version 1)
Quarter: 2013Q1

REPORT INFORMATION
  Report Type: Spontaneous
  Country: US (occurrence: None)
  Receive Date: 20130305
  Receipt Date: 20130305
  Transmission Date: 20140127
  Serious: Yes (Other)
  Sender: FDA-Public Use
  Company Number: 163-21880-12012421

PATIENT
  Age: 59 Year
  Sex: Female

DRUGS (7)
  1. REVLIMID [Suspect]
     Indication: PLASMA CELL MYELOMA
     Dosage: 10 MG, UT DICT, PO
     Route: 048
     Dates: start: 20110830
  2. HUMALOG (INSULIN LISPRO) (UNKNOWN) [Concomitant]
  3. LANTUS (INSULIN GLARGINE) (UNKNOWN) [Concomitant]
  4. GLYBURIDE (GLIBENCLAMIDE) (UNKNOWN) [Concomitant]
  5. METFORMIN (METFORMIN) (UNKNOWN) [Concomitant]
  6. STOOL SOFTENER (DOCUSATE SODIUM) (UNKNOWN) [Concomitant]
  7. AMITRIPTYLINE (AMITRIPTYLINE) (UNKNOWN) [Concomitant]

REACTIONS (4)
  - Skin discolouration [None]
  - Diarrhoea [None]
  - Neutropenia [None]
  - Fatigue [None]
